FAERS Safety Report 25214140 (Version 1)
Quarter: 2025Q2

REPORT INFORMATION
  Report Type: Spontaneous
  Country: FR (occurrence: FR)
  Receive Date: 20250418
  Receipt Date: 20250418
  Transmission Date: 20250716
  Serious: Yes (Hospitalization)
  Sender: PFIZER
  Company Number: None

PATIENT
  Age: 52 Year
  Sex: Male
  Weight: 108 kg

DRUGS (16)
  1. MEDROL [Suspect]
     Active Substance: METHYLPREDNISOLONE
     Indication: Pain
     Dosage: 80 MG, 1X/DAY
     Route: 048
     Dates: start: 20240219, end: 20240304
  2. MEDROL [Suspect]
     Active Substance: METHYLPREDNISOLONE
     Dosage: 120 MG, 1X/DAY
     Route: 048
     Dates: start: 20240305, end: 20240317
  3. MEDROL [Suspect]
     Active Substance: METHYLPREDNISOLONE
     Dosage: 80 MG, 1X/DAY
     Route: 048
     Dates: start: 20240318, end: 20240403
  4. MEDROL [Suspect]
     Active Substance: METHYLPREDNISOLONE
     Dosage: 40 MG, 1X/DAY
     Route: 048
     Dates: start: 20240404, end: 20240827
  5. CABOZANTINIB [Suspect]
     Active Substance: CABOZANTINIB
     Dosage: 1 DF, 1X/DAY
     Route: 048
     Dates: start: 20240219, end: 20240427
  6. CABOZANTINIB [Suspect]
     Active Substance: CABOZANTINIB
     Dosage: 1 DF, 1X/DAY
     Route: 048
     Dates: start: 20240504, end: 20240511
  7. CABOZANTINIB [Suspect]
     Active Substance: CABOZANTINIB
     Dosage: 1 DF, 1X/DAY
     Route: 048
     Dates: start: 20240529, end: 20240820
  8. CABOZANTINIB [Suspect]
     Active Substance: CABOZANTINIB
     Dosage: 1 DF, 1X/DAY
     Route: 048
     Dates: start: 20250103, end: 20250228
  9. PREDNISONE [Suspect]
     Active Substance: PREDNISONE
     Indication: Pain
     Dosage: 40 MG, 1X/DAY
     Route: 048
     Dates: start: 20240130, end: 20240218
  10. PREDNISONE [Suspect]
     Active Substance: PREDNISONE
     Dosage: 20 MG, 1X/DAY
     Route: 048
     Dates: start: 20240428, end: 20240503
  11. PREDNISONE [Suspect]
     Active Substance: PREDNISONE
     Dosage: 10 MG, 1X/DAY
     Route: 048
     Dates: start: 20240503, end: 20240902
  12. PREDNISONE [Suspect]
     Active Substance: PREDNISONE
     Dosage: 7.5 MG, 1X/DAY
     Route: 048
     Dates: start: 20240903, end: 20250125
  13. OPDIVO [Concomitant]
     Active Substance: NIVOLUMAB
     Route: 042
     Dates: start: 20240219, end: 20240725
  14. RAMIPRIL [Concomitant]
     Active Substance: RAMIPRIL
     Dosage: 5 MG, 1X/DAY
     Route: 048
  15. LERCANIDIPINE [Concomitant]
     Active Substance: LERCANIDIPINE
     Dosage: 10 MG, 1X/DAY
     Route: 048
  16. ATORVASTATIN [Concomitant]
     Active Substance: ATORVASTATIN
     Dosage: 80 MG, 1X/DAY
     Route: 048

REACTIONS (3)
  - Skin ulcer [Recovered/Resolved]
  - Impaired healing [Recovered/Resolved]
  - Off label use [Unknown]

NARRATIVE: CASE EVENT DATE: 20240501
